FAERS Safety Report 21275264 (Version 1)
Quarter: 2022Q3

REPORT INFORMATION
  Report Type: Spontaneous
  Country: US (occurrence: None)
  Receive Date: 20220831
  Receipt Date: 20220831
  Transmission Date: 20221027
  Serious: Yes (Life-Threatening, Hospitalization, Disabling)
  Sender: FDA-Public Use
  Company Number: None

PATIENT
  Sex: Male

DRUGS (2)
  1. SEROQUEL [Suspect]
     Active Substance: QUETIAPINE FUMARATE
  2. RITALIN [Suspect]
     Active Substance: METHYLPHENIDATE HYDROCHLORIDE

REACTIONS (9)
  - Chest pain [None]
  - Heart rate increased [None]
  - Drug abuse [None]
  - Anxiety [None]
  - Stress [None]
  - Dyspnoea at rest [None]
  - Gait disturbance [None]
  - Neck pain [None]
  - Tremor [None]

NARRATIVE: CASE EVENT DATE: 20220830
